FAERS Safety Report 21300503 (Version 1)
Quarter: 2022Q3

REPORT INFORMATION
  Report Type: Spontaneous
  Country: GB (occurrence: GB)
  Receive Date: 20220907
  Receipt Date: 20220907
  Transmission Date: 20221027
  Serious: Yes (Other)
  Sender: FDA-Public Use
  Company Number: GB-AUROBINDO-AUR-APL-2022-034999

PATIENT
  Age: 57 Year
  Sex: Female

DRUGS (2)
  1. BISOPROLOL [Suspect]
     Active Substance: BISOPROLOL
     Indication: Product used for unknown indication
     Dosage: 1.25 MILLIGRAM, ONCE A DAY
     Route: 065
  2. PAXLOVID [Suspect]
     Active Substance: NIRMATRELVIR\RITONAVIR
     Indication: Product used for unknown indication
     Dosage: UNK,NIRMATRELVIR (TWO 150 MG TABLETS) WITH 100 MG RITONAVIR ALL TAKEN TOGETHER
     Route: 065
     Dates: start: 20220707

REACTIONS (4)
  - Bradycardia [Unknown]
  - Nausea [Unknown]
  - Dysgeusia [Unknown]
  - Vomiting [Unknown]

NARRATIVE: CASE EVENT DATE: 20220707
